FAERS Safety Report 8778188 (Version 1)
Quarter: 2012Q4

REPORT INFORMATION
  Report Type: 
  Country: US (occurrence: US)
  Receive Date: 20120912
  Receipt Date: 20120912
  Transmission Date: 20130627
  Serious: No
  Sender: FDA-Public Use
  Company Number: US-ASTRAZENECA-2012SE69728

PATIENT
  Age: 47 Year
  Sex: Male

DRUGS (6)
  1. NEXIUM [Suspect]
     Route: 048
  2. SPIRIVA [Concomitant]
  3. ALBUTEROL [Concomitant]
  4. XANAX [Concomitant]
  5. DIOVAN [Concomitant]
  6. VERAMYST [Concomitant]

REACTIONS (11)
  - Abdominal pain lower [Unknown]
  - Diverticulum [Unknown]
  - Constipation [Unknown]
  - Dyspnoea exertional [Unknown]
  - Chronic obstructive pulmonary disease [Unknown]
  - Hypertension [Unknown]
  - Gastrooesophageal reflux disease [Unknown]
  - Diabetes mellitus [Unknown]
  - Gastrooesophageal reflux disease [Unknown]
  - Cough [Unknown]
  - Nausea [Unknown]
